FAERS Safety Report 10050813 (Version 1)
Quarter: 2014Q2

REPORT INFORMATION
  Report Type: Spontaneous
  Country: US (occurrence: US)
  Receive Date: 20140401
  Receipt Date: 20140401
  Transmission Date: 20141212
  Serious: No
  Sender: FDA-Public Use
  Company Number: US-ASTRAZENECA-2013SE70519

PATIENT
  Age: 48 Year
  Sex: Female
  Weight: 88.9 kg

DRUGS (6)
  1. NEXIUM [Suspect]
     Indication: GASTROOESOPHAGEAL REFLUX DISEASE
     Route: 048
     Dates: start: 201307
  2. PEPCID AC [Concomitant]
     Indication: DYSPEPSIA
     Route: 048
  3. LORAZEPAM [Concomitant]
     Dosage: 1 MG
     Route: 048
  4. LEXAPRO [Concomitant]
     Dosage: 10 MG
     Route: 048
  5. LEVOTHYROXINE [Concomitant]
     Dosage: 75
     Route: 048
  6. VIVANESE [Concomitant]
     Route: 048

REACTIONS (4)
  - Chest discomfort [Not Recovered/Not Resolved]
  - Hiatus hernia [Not Recovered/Not Resolved]
  - Drug effect decreased [Not Recovered/Not Resolved]
  - Off label use [Not Recovered/Not Resolved]
